FAERS Safety Report 13668951 (Version 1)
Quarter: 2017Q2

REPORT INFORMATION
  Report Type: Other
  Country: CA (occurrence: CA)
  Receive Date: 20170620
  Receipt Date: 20170620
  Transmission Date: 20170830
  Serious: No
  Sender: FDA-Public Use
  Company Number: CA-WELLSTAT THERAPEUTICS CORPORATION-2022264

PATIENT
  Age: 72 Year
  Sex: Male
  Weight: 66.7 kg

DRUGS (3)
  1. CAPECITABINE. [Concomitant]
     Active Substance: CAPECITABINE
     Route: 048
     Dates: start: 20170313, end: 20170327
  2. NEUPOGEN [Concomitant]
     Active Substance: FILGRASTIM
     Dates: start: 20170330
  3. VISTOGARD [Suspect]
     Active Substance: URIDINE TRIACETATE
     Indication: CHEMOTHERAPY TOXICITY ATTENUATION
     Route: 050
     Dates: start: 20170401, end: 20170406

REACTIONS (2)
  - Complication associated with device [Recovered/Resolved]
  - Mucosal inflammation [Recovered/Resolved]

NARRATIVE: CASE EVENT DATE: 20170403
